FAERS Safety Report 7197859-4 (Version None)
Quarter: 2010Q4

REPORT INFORMATION
  Report Type: 
  Country: None (occurrence: None)
  Receive Date: 20101214
  Receipt Date: 20101201
  Transmission Date: 20110411
  Serious: Yes (Hospitalization)
  Sender: FDA-Public Use
  Company Number: 2010S1000390

PATIENT
  Age: 82 Year
  Sex: Female

DRUGS (5)
  1. DARVOCET-N 100 [Suspect]
     Indication: BACK PAIN
     Dosage: PRN; PO
     Route: 048
     Dates: start: 19900101, end: 20101129
  2. DARVOCET-N 100 [Suspect]
     Indication: MUSCULOSKELETAL PAIN
     Dosage: PRN; PO
     Route: 048
     Dates: start: 19900101, end: 20101129
  3. POTASSIUM [Concomitant]
  4. ALPRAZOLAM [Concomitant]
  5. WATER PILL [Concomitant]

REACTIONS (6)
  - CARDIAC VALVE DISEASE [None]
  - EJECTION FRACTION DECREASED [None]
  - FEELING ABNORMAL [None]
  - FLUID RETENTION [None]
  - HEART RATE INCREASED [None]
  - WEIGHT DECREASED [None]
